FAERS Safety Report 4761702-0 (Version None)
Quarter: 2005Q3

REPORT INFORMATION
  Report Type: 
  Country: None (occurrence: None)
  Receive Date: 20050906
  Receipt Date: 20050826
  Transmission Date: 20060218
  Serious: Yes (Death, Hospitalization)
  Sender: FDA-Public Use
  Company Number: SE-JNJFOC-20050806375

PATIENT
  Age: 81 Year
  Sex: Male

DRUGS (13)
  1. TOPAMAX [Suspect]
     Indication: DRUG USE FOR UNKNOWN INDICATION
     Route: 048
  2. RISPERDAL [Concomitant]
     Route: 065
  3. ORALOVITE [Concomitant]
     Route: 065
  4. ORALOVITE [Concomitant]
     Route: 065
  5. ORALOVITE [Concomitant]
     Route: 065
  6. ORALOVITE [Concomitant]
     Route: 065
  7. ORALOVITE [Concomitant]
     Route: 065
  8. HEMINEVRIN [Concomitant]
     Route: 065
  9. LANACRIST [Concomitant]
     Route: 065
  10. ASPIRIN [Concomitant]
     Route: 065
  11. FUROSEMIDE [Concomitant]
     Route: 065
  12. ZOPIKLON [Concomitant]
     Route: 065
  13. LINATIL [Concomitant]
     Route: 065

REACTIONS (10)
  - APATHY [None]
  - BLOOD CREATININE INCREASED [None]
  - BLOOD PRESSURE DECREASED [None]
  - BLUNTED AFFECT [None]
  - COORDINATION ABNORMAL [None]
  - DEHYDRATION [None]
  - DRUG TOXICITY [None]
  - GENERAL PHYSICAL HEALTH DETERIORATION [None]
  - HYPERVENTILATION [None]
  - STUPOR [None]
